FAERS Safety Report 11167944 (Version 1)
Quarter: 2015Q2

REPORT INFORMATION
  Report Type: Spontaneous
  Country: US (occurrence: None)
  Receive Date: 20150603
  Receipt Date: 20150603
  Transmission Date: 20150821
  Serious: Yes (Other)
  Sender: FDA-Public Use
  Company Number: ADR-2014-02346

PATIENT
  Age: 19 Year
  Sex: Female

DRUGS (1)
  1. LIORESAL [Suspect]
     Active Substance: BACLOFEN
     Indication: MUSCLE SPASTICITY

REACTIONS (6)
  - Muscle spasticity [None]
  - Headache [None]
  - Intracranial pressure increased [None]
  - Implant site extravasation [None]
  - Catheter site extravasation [None]
  - Cerebrospinal fluid leakage [None]

NARRATIVE: CASE EVENT DATE: 20141208
